FAERS Safety Report 7383214-0 (Version None)
Quarter: 2011Q1

REPORT INFORMATION
  Report Type: 
  Country: None (occurrence: None)
  Receive Date: 20110330
  Receipt Date: 20110302
  Transmission Date: 20110831
  Serious: No
  Sender: FDA-Public Use
  Company Number: US-B.I. PHARMACEUTICALS,INC./RIDGEFIELD-2011-BP-02047BP

PATIENT
  Age: 80 Year
  Sex: Female

DRUGS (11)
  1. TRICOR [Concomitant]
     Dosage: 145 MG
  2. OXYGEN [Concomitant]
  3. BENICAR [Concomitant]
     Dosage: 40 MG
  4. AMARYL [Concomitant]
     Dosage: 8 MG
  5. JANUVIA [Concomitant]
     Dosage: 100 MG
  6. VITAMIN B-12 [Concomitant]
  7. PRADAXA [Suspect]
     Indication: ATRIAL FIBRILLATION
     Dosage: 300 MG
     Route: 048
     Dates: start: 20101210
  8. METFORMIN [Concomitant]
     Dosage: 2625 MG
  9. CALCIUM + D [Concomitant]
     Dosage: 1800 MG
  10. LANTUS [Concomitant]
  11. VITAMIN TAB [Concomitant]

REACTIONS (2)
  - DIZZINESS POSTURAL [None]
  - DIZZINESS [None]
